FAERS Safety Report 4658287-6 (Version None)
Quarter: 2005Q2

REPORT INFORMATION
  Report Type: 
  Country: None (occurrence: None)
  Receive Date: 20050510
  Receipt Date: 20050510
  Transmission Date: 20051028
  Serious: Yes (Other)
  Sender: FDA-Public Use
  Company Number: None

PATIENT
  Age: 84 Year
  Sex: Female
  Weight: 68 kg

DRUGS (9)
  1. LEVOFLOXACIN [Suspect]
     Indication: PNEUMONIA
     Dosage: 750MG   DAILY   ORAL
     Route: 048
     Dates: start: 20050126, end: 20050128
  2. THEOPHYLLINE-SR [Suspect]
     Indication: ASTHMA
     Dosage: 300MG    DAILY   ORAL
     Route: 048
     Dates: start: 20040101, end: 20050128
  3. CLONIDINE [Concomitant]
  4. VALSARTAN [Concomitant]
  5. LEVOTHYROXINE SODIUM [Concomitant]
  6. FLOVENT [Concomitant]
  7. ASPIRIN [Concomitant]
  8. CLOPIDOGREL BISULFATE [Concomitant]
  9. PANTOPRAZOLE [Concomitant]

REACTIONS (5)
  - DEPRESSED LEVEL OF CONSCIOUSNESS [None]
  - DRUG INTERACTION [None]
  - FALL [None]
  - GRAND MAL CONVULSION [None]
  - RENAL IMPAIRMENT [None]
